FAERS Safety Report 8009382-5 (Version None)
Quarter: 2011Q4

REPORT INFORMATION
  Report Type: 
  Country: None (occurrence: None)
  Receive Date: 20111227
  Receipt Date: 20111216
  Transmission Date: 20120403
  Serious: Yes (Hospitalization, Disabling)
  Sender: FDA-Public Use
  Company Number: FR-PERRIGO-11FR011023

PATIENT
  Age: 39 Year
  Sex: Female

DRUGS (5)
  1. CEFTRIAXONE [Suspect]
     Indication: OSTEITIS
     Route: 065
  2. TRAMADOL HCL [Suspect]
     Indication: OSTEITIS
     Route: 065
  3. NEFOPAM [Suspect]
     Indication: OSTEITIS
     Route: 065
  4. GENTAMICIN SULFATE [Suspect]
     Indication: OSTEITIS
     Route: 065
  5. VANCOMYCIN HYCHLORIDE [Suspect]
     Indication: OSTEITIS
     Route: 065

REACTIONS (10)
  - DERMATITIS EXFOLIATIVE [None]
  - BASEDOW'S DISEASE [None]
  - LYMPHADENOPATHY [None]
  - RENAL FAILURE ACUTE [None]
  - CHOLESTASIS [None]
  - HEPATIC ENZYME INCREASED [None]
  - DRUG RASH WITH EOSINOPHILIA AND SYSTEMIC SYMPTOMS [None]
  - CYTOLYTIC HEPATITIS [None]
  - SWELLING FACE [None]
  - HYPOTENSION [None]
